FAERS Safety Report 5283175-4 (Version None)
Quarter: 2007Q2

REPORT INFORMATION
  Report Type: 
  Country: None (occurrence: None)
  Receive Date: 20070402
  Receipt Date: 20070326
  Transmission Date: 20071010
  Serious: Yes (Hospitalization)
  Sender: FDA-Public Use
  Company Number: US-GLAXOSMITHKLINE-A0641219B

PATIENT
  Age: 60 Year
  Sex: Female
  Weight: 72.2 kg

DRUGS (3)
  1. LAPATINIB [Suspect]
     Dosage: 1250MG PER DAY
     Route: 048
     Dates: start: 20070208, end: 20070311
  2. CAPECITABINE [Suspect]
     Dosage: 1500MG TWICE PER DAY
     Route: 048
     Dates: start: 20070208, end: 20070221
  3. DECADRON [Concomitant]

REACTIONS (6)
  - ABASIA [None]
  - ASTHENIA [None]
  - DEHYDRATION [None]
  - DYSSTASIA [None]
  - FATIGUE [None]
  - MALAISE [None]
